FAERS Safety Report 19921487 (Version 7)
Quarter: 2022Q2

REPORT INFORMATION
  Report Type: Spontaneous
  Country: JP (occurrence: JP)
  Receive Date: 20211006
  Receipt Date: 20220609
  Transmission Date: 20220721
  Serious: Yes (Death, Life-Threatening, Hospitalization, Other)
  Sender: FDA-Public Use
  Company Number: JP-AMGEN-JPNSP2021151432

PATIENT
  Age: 93 Year
  Sex: Female
  Weight: 38 kg

DRUGS (1)
  1. EVENITY [Suspect]
     Active Substance: ROMOSOZUMAB-AQQG
     Indication: Osteoporosis
     Dosage: 210 MILLIGRAM, QMO
     Route: 058
     Dates: start: 20210806, end: 20210903

REACTIONS (4)
  - Cardiac failure [Fatal]
  - Renal failure [Fatal]
  - Myocardial infarction [Fatal]
  - Pulmonary congestion [Unknown]

NARRATIVE: CASE EVENT DATE: 20210926
